FAERS Safety Report 6069350-X (Version None)
Quarter: 2009Q1

REPORT INFORMATION
  Report Type: 
  Country: None (occurrence: None)
  Receive Date: 20090206
  Receipt Date: 20090204
  Transmission Date: 20090719
  Serious: Yes (Hospitalization, Other)
  Sender: FDA-Public Use
  Company Number: DE-ABBOTT-09P-062-0500421-00

PATIENT
  Age: 69 Year
  Sex: Female

DRUGS (2)
  1. HUMIRA [Suspect]
     Indication: DRUG USE FOR UNKNOWN INDICATION
     Dates: start: 20030801, end: 20040901
  2. LEFLUNOMIDE [Suspect]
     Indication: DRUG USE FOR UNKNOWN INDICATION

REACTIONS (6)
  - BACK PAIN [None]
  - LUMBAR VERTEBRAL FRACTURE [None]
  - MUSCULAR WEAKNESS [None]
  - POST PROCEDURAL COMPLICATION [None]
  - SPINAL FUSION SURGERY [None]
  - SPINAL OSTEOARTHRITIS [None]
